FAERS Safety Report 8836420 (Version 1)
Quarter: 2012Q4

REPORT INFORMATION
  Report Type: 
  Country: US (occurrence: US)
  Receive Date: 20121011
  Receipt Date: 20121011
  Transmission Date: 20130627
  Serious: No
  Sender: FDA-Public Use
  Company Number: US-NOVEN-12US005396

PATIENT
  Sex: Male

DRUGS (1)
  1. FENTANYL [Suspect]
     Indication: ARTHRALGIA
     Dosage: 125 ug/hr
     Route: 062

REACTIONS (1)
  - Inadequate analgesia [Not Recovered/Not Resolved]
